FAERS Safety Report 20173116 (Version 1)
Quarter: 2021Q4

REPORT INFORMATION
  Report Type: Spontaneous
  Country: TH (occurrence: TH)
  Receive Date: 20211211
  Receipt Date: 20211211
  Transmission Date: 20220303
  Serious: Yes (Hospitalization, Other)
  Sender: FDA-Public Use
  Company Number: TH-NOVARTISPH-NVSC2021TH278399

PATIENT
  Age: 58 Year
  Sex: Female
  Weight: 36 kg

DRUGS (13)
  1. ENTRESTO [Suspect]
     Active Substance: SACUBITRIL\VALSARTAN
     Indication: Cardiac failure
     Dosage: 0.5 DOSAGE FORM, BID (AFTER BREAKFAST AND DINNER) (LOW DOSE)
     Route: 048
     Dates: start: 20201121
  2. IVABRADINE [Concomitant]
     Active Substance: IVABRADINE
     Indication: Heart rate abnormal
     Dosage: 5 MG, BID (AFTER MEAL)
     Route: 048
  3. SPIRONOLACTONE [Concomitant]
     Active Substance: SPIRONOLACTONE
     Indication: Product used for unknown indication
     Dosage: 0.5 DOSAGE FORM, QD (AFTER MEAL)
     Route: 048
  4. LANOXIN [Concomitant]
     Active Substance: DIGOXIN
     Indication: Heart rate abnormal
     Dosage: 1 DOSAGE FORM, QD (AFTER MEAL)
     Route: 048
  5. ASPIRIN [Concomitant]
     Active Substance: ASPIRIN
     Indication: Product used for unknown indication
     Dosage: 81 MG, QD- (A TABLET AFTER MEAL)
     Route: 048
  6. CLOPIDOGREL [Concomitant]
     Active Substance: CLOPIDOGREL BISULFATE
     Indication: Product used for unknown indication
     Dosage: 75 MG, QD (A TABLET AFTER MEAL)
     Route: 048
  7. OMEPRAZOLE [Concomitant]
     Active Substance: OMEPRAZOLE
     Indication: Product used for unknown indication
     Dosage: 20 MG, QD (A TABLET, BEFORE MEAL)
     Route: 048
  8. FUROSEMIDE [Concomitant]
     Active Substance: FUROSEMIDE
     Indication: Product used for unknown indication
     Dosage: 40 MG, QD (A TABLET, AFTER MEAL)
     Route: 048
  9. FUROSEMIDE [Concomitant]
     Active Substance: FUROSEMIDE
     Dosage: 0.5 DOSAGE FORM, QD (40 MG, AFTER MEAL)
     Route: 048
  10. FUROSEMIDE [Concomitant]
     Active Substance: FUROSEMIDE
     Dosage: 40 MG, QD (A TABLET AFTER MEAL)
     Route: 048
  11. FUROSEMIDE [Concomitant]
     Active Substance: FUROSEMIDE
     Dosage: 0.5 DOSAGE FORM, QD (500 MG, AFTER MEAL)
     Route: 048
  12. ALDACTONE [Concomitant]
     Active Substance: SPIRONOLACTONE
     Indication: Product used for unknown indication
     Dosage: 0.5 DOSAGE FORM, QOD
     Route: 065
  13. LASIX [Concomitant]
     Active Substance: FUROSEMIDE
     Indication: Product used for unknown indication
     Dosage: 0.5 DOSAGE FORM, QD
     Route: 065

REACTIONS (29)
  - Cardiac failure [Recovered/Resolved]
  - Cardiac failure [Recovered/Resolved]
  - Ejection fraction decreased [Unknown]
  - Diastolic dysfunction [Recovering/Resolving]
  - Tricuspid valve incompetence [Unknown]
  - Cardiomyopathy [Unknown]
  - Urinary retention [Unknown]
  - Blood potassium decreased [Unknown]
  - Right ventricular failure [Unknown]
  - Pulmonary hypertension [Unknown]
  - Right ventricular dilatation [Unknown]
  - Hypotension [Unknown]
  - Blood sodium decreased [Unknown]
  - Left ventricular dysfunction [Recovering/Resolving]
  - Left ventricular dilatation [Recovering/Resolving]
  - Hypokinesia [Unknown]
  - Atrial enlargement [Unknown]
  - Glomerular filtration rate decreased [Unknown]
  - Weight decreased [Unknown]
  - Dyspnoea [Unknown]
  - White blood cell count decreased [Unknown]
  - Chest discomfort [Unknown]
  - Oedema peripheral [Unknown]
  - Anion gap increased [Unknown]
  - Underweight [Unknown]
  - Oedema [Unknown]
  - Lung disorder [Unknown]
  - Chest pain [Unknown]
  - Wrong technique in product usage process [Unknown]

NARRATIVE: CASE EVENT DATE: 20210319
